FAERS Safety Report 5933155-8 (Version None)
Quarter: 2008Q4

REPORT INFORMATION
  Report Type: 
  Country: None (occurrence: None)
  Receive Date: 20081028
  Receipt Date: 20081017
  Transmission Date: 20090506
  Serious: Yes (Hospitalization)
  Sender: FDA-Public Use
  Company Number: US-TYCO HEALTHCARE/MALLINCKRODT-T200801713

PATIENT

DRUGS (23)
  1. OXYCODONE HCL [Suspect]
     Indication: PAIN
     Dosage: 140 MG, BID (EVERY 12 HOURS)
  2. OXYCODONE HCL [Suspect]
     Dosage: 15 MG, EVERY 4 HOURS, PRN
  3. OXYCODONE HCL [Suspect]
     Dosage: 120 MG, TID
  4. OXYCODONE HCL [Suspect]
     Dosage: 50 MG, EVERY 8 HOURS, PRN
  5. OXYCODONE HCL [Suspect]
     Dosage: 60 MG, BID
  6. MORPHINE [Suspect]
     Indication: PAIN
     Dosage: 120 MG, TID
  7. MORPHINE [Suspect]
     Indication: BREAKTHROUGH PAIN
     Dosage: 60 MG, EVERY 4 HOURS, PRN
  8. MORPHINE [Suspect]
     Dosage: 6 MG, HR BASAL RATE (3 MG DEMAND DOSE Q6 MIN)
  9. MORPHINE [Suspect]
     Dosage: 10 MG, HR BASAL RATE (4 MG DEMAND DOSE)
  10. MORPHINE [Suspect]
     Dosage: 230 MG, TID
  11. MORPHINE [Suspect]
     Dosage: 120 MG, EVERY THREE HOURS
  12. MORPHINE [Suspect]
     Dosage: 200 MG, EVERY THREE HOURS
  13. HYDROMORPHONE HCL [Suspect]
     Indication: PAIN
     Dosage: 9 MG, HR BASAL RATE (4.5 MG DEMAND DOSE Q12 MIN)
  14. HYDROMORPHONE HCL [Suspect]
     Dosage: 27 MG, HR BASAL RATE (13 MG DEMAND DOSE Q10 MIN)
  15. HYDROMORPHONE HCL [Suspect]
     Dosage: 20 MG, HR BASAL RATE (10 MG DEMAND DOSE Q15 MIN)
  16. FENTANYL [Suspect]
     Indication: PAIN
     Dosage: 200 UG, UNK
  17. IBUPROFEN TABLETS [Concomitant]
     Dosage: 800 MG, TID
  18. IBUPROFEN TABLETS [Concomitant]
     Dosage: 800 MG, TID
  19. IBUPROFEN TABLETS [Concomitant]
     Dosage: 400 MG, TID
  20. LORAZEPAM [Concomitant]
     Dosage: .25 MG, TID
  21. LIDOCAINE [Concomitant]
     Dosage: 5 % PATCH
  22. DEXAMETHASONE 4MG TAB [Concomitant]
     Indication: METASTASES TO SPINE
     Dosage: 10 MG, UNK
     Route: 042
  23. DEXAMETHASONE 4MG TAB [Concomitant]
     Dosage: 4 MG, QID (EVERY 6 HOURS)

REACTIONS (6)
  - ASTHENIA [None]
  - FATIGUE [None]
  - HYPERAESTHESIA [None]
  - NAUSEA [None]
  - SEDATION [None]
  - VOMITING [None]
